FAERS Safety Report 4902152-3 (Version None)
Quarter: 2006Q1

REPORT INFORMATION
  Report Type: 
  Country: None (occurrence: None)
  Receive Date: 20060206
  Receipt Date: 20060126
  Transmission Date: 20060701
  Serious: Yes (Hospitalization, Disabling, Other)
  Sender: FDA-Public Use
  Company Number: JP-MERCK-0601USA03578

PATIENT
  Age: 66 Year
  Sex: Female

DRUGS (7)
  1. PEPCID [Suspect]
     Route: 048
  2. PERINDOPRIL ERBUMINE [Suspect]
     Route: 065
  3. [THERAPY UNSPECIFIED] [Suspect]
     Route: 065
  4. GLIMEPIRIDE [Suspect]
     Route: 065
  5. DANTROLENE SODIUM [Suspect]
     Route: 065
  6. PHENYTOIN [Suspect]
     Indication: PROPHYLAXIS
     Route: 065
  7. PHENYTOIN [Suspect]
     Route: 065

REACTIONS (8)
  - ANEURYSM RUPTURED [None]
  - APLASIA PURE RED CELL [None]
  - CEREBRAL INFARCTION [None]
  - CEREBROVASCULAR SPASM [None]
  - COMA [None]
  - EPILEPSY [None]
  - HAEMOLYTIC ANAEMIA [None]
  - SUBARACHNOID HAEMORRHAGE [None]
